FAERS Safety Report 4436457-X (Version None)
Quarter: 2004Q3

REPORT INFORMATION
  Report Type: 
  Country: None (occurrence: None)
  Receive Date: 20040830
  Receipt Date: 20040518
  Transmission Date: 20050211
  Serious: No
  Sender: FDA-Public Use
  Company Number: US-BRISTOL-MYERS SQUIBB COMPANY-12590733

PATIENT
  Age: 42 Year
  Sex: Female
  Weight: 100 kg

DRUGS (7)
  1. ABILIFY [Suspect]
     Indication: BIPOLAR DISORDER
     Dosage: 5 MG JAN-04; 7.5 MG FEB-04; 10 MG MAR-04; 15 MG ON 20-APR-04
     Route: 048
     Dates: start: 20040101
  2. ABILIFY [Suspect]
     Indication: PSYCHOTIC DISORDER
     Dosage: 5 MG JAN-04; 7.5 MG FEB-04; 10 MG MAR-04; 15 MG ON 20-APR-04
     Route: 048
     Dates: start: 20040101
  3. RISPERDAL [Concomitant]
     Dates: start: 20040101
  4. SEROQUEL [Concomitant]
  5. LIPITOR [Concomitant]
  6. RELAFEN [Concomitant]
  7. METFORMIN HCL [Concomitant]

REACTIONS (1)
  - BLOOD GLUCOSE INCREASED [None]
